FAERS Safety Report 4352873-9 (Version None)
Quarter: 2004Q2

REPORT INFORMATION
  Report Type: 
  Country: None (occurrence: None)
  Receive Date: 20040429
  Receipt Date: 20040420
  Transmission Date: 20050107
  Serious: Yes (Hospitalization, Other)
  Sender: FDA-Public Use
  Company Number: US-JNJFOC-20040404481

PATIENT
  Age: 47 Year
  Sex: Female

DRUGS (3)
  1. DURAGESIC [Suspect]
     Indication: PAIN
     Dosage: 75 UG/HR, 1 IN 72 HOUR, TRANSDERMAL
     Route: 062
     Dates: start: 20031101
  2. RISPERDAL [Concomitant]
  3. EFFEXOR [Concomitant]

REACTIONS (6)
  - BLOOD PRESSURE DECREASED [None]
  - CATATONIA [None]
  - HEPATIC FUNCTION ABNORMAL [None]
  - MEDICATION ERROR [None]
  - PULMONARY OEDEMA [None]
  - RENAL IMPAIRMENT [None]
